FAERS Safety Report 7315241-3 (Version None)
Quarter: 2011Q1

REPORT INFORMATION
  Report Type: 
  Country: None (occurrence: None)
  Receive Date: 20110215
  Receipt Date: 20110201
  Transmission Date: 20110831
  Serious: Yes (Disabling, Other)
  Sender: FDA-Public Use
  Company Number: 2011MA001091

PATIENT
  Age: 18 Month
  Sex: Male

DRUGS (5)
  1. CEFOTAXIME [Concomitant]
  2. OSELTAMIVIR [Concomitant]
  3. FEVERALL [Suspect]
     Indication: PYREXIA
     Dosage: 240 MG; ; IV
     Route: 042
     Dates: start: 20110101, end: 20110101
  4. ACICLOVIR [Concomitant]
  5. PHENYTOIN [Concomitant]

REACTIONS (4)
  - INTERNATIONAL NORMALISED RATIO INCREASED [None]
  - ALANINE AMINOTRANSFERASE INCREASED [None]
  - COAGULOPATHY [None]
  - HAEMORRHAGE [None]
